FAERS Safety Report 7414547-7 (Version None)
Quarter: 2011Q2

REPORT INFORMATION
  Report Type: 
  Country: None (occurrence: None)
  Receive Date: 20110411
  Receipt Date: 20110411
  Transmission Date: 20111010
  Serious: Yes (Disabling)
  Sender: FDA-Public Use
  Company Number: None

PATIENT
  Age: 54 Year
  Sex: Female
  Weight: 111.1313 kg

DRUGS (2)
  1. PANTOPRAZOLE SODIUM [Suspect]
     Indication: GASTRIC ULCER
     Dosage: 40MG 1 DAY PO
     Route: 048
     Dates: start: 20070304, end: 20110409
  2. SLOW MAG TABLETS [Concomitant]

REACTIONS (2)
  - CARDIAC TAMPONADE [None]
  - MUSCLE SPASMS [None]
